FAERS Safety Report 4296764-0 (Version None)
Quarter: 2004Q1

REPORT INFORMATION
  Report Type: 
  Country: None (occurrence: None)
  Receive Date: 20040126
  Receipt Date: 20030902
  Transmission Date: 20041129
  Serious: No
  Sender: FDA-Public Use
  Company Number: USA030742812

PATIENT

DRUGS (2)
  1. STRATTERA [Suspect]
     Dates: start: 20030724
  2. WELLBUTRIN [Concomitant]

REACTIONS (1)
  - SOMNOLENCE [None]
